FAERS Safety Report 6038038-3 (Version None)
Quarter: 2009Q1

REPORT INFORMATION
  Report Type: 
  Country: None (occurrence: None)
  Receive Date: 20090115
  Receipt Date: 20090108
  Transmission Date: 20090719
  Serious: Yes (Hospitalization)
  Sender: FDA-Public Use
  Company Number: US-ASTRAZENECA-2009AC00325

PATIENT
  Age: 32 Year
  Sex: Male

DRUGS (10)
  1. QUETIAPINE FUMARATE [Suspect]
     Dosage: APPROXIMATELY 7-9 TABLETS
     Route: 048
  2. COCAINE [Suspect]
     Route: 065
  3. ALCOHOL [Suspect]
     Route: 065
  4. MARIJUANA [Suspect]
     Route: 065
  5. AMLODIPINE [Concomitant]
  6. ATORVASTATIN CALCIUM [Concomitant]
  7. QUINAPRIL [Concomitant]
  8. GLIPIZIDE [Concomitant]
  9. DULOXETINE [Concomitant]
  10. DIVALPROEX SODIUM [Concomitant]

REACTIONS (6)
  - ELECTROCARDIOGRAM QT PROLONGED [None]
  - MENTAL STATUS CHANGES [None]
  - OVERDOSE [None]
  - PRIAPISM [None]
  - SUBSTANCE ABUSE [None]
  - SUICIDE ATTEMPT [None]
